FAERS Safety Report 22365121 (Version 1)
Quarter: 2023Q2

REPORT INFORMATION
  Report Type: Spontaneous
  Country: GB (occurrence: GB)
  Receive Date: 20230525
  Receipt Date: 20230525
  Transmission Date: 20230721
  Serious: Yes (Other)
  Sender: FDA-Public Use
  Company Number: GB-MHRA-MED-202305141340016200-HSFJY

PATIENT
  Age: 39 Year
  Sex: Male
  Weight: 79 kg

DRUGS (1)
  1. LINEZOLID [Suspect]
     Active Substance: LINEZOLID
     Indication: Prostatitis
     Dosage: 600 MILLIGRAM, TWO TIMES A DAY
     Route: 065
     Dates: start: 20230426, end: 20230428

REACTIONS (7)
  - Neuropathy peripheral [Not Recovered/Not Resolved]
  - Pruritus [Not Recovered/Not Resolved]
  - Paraesthesia [Not Recovered/Not Resolved]
  - Skin burning sensation [Not Recovered/Not Resolved]
  - Chills [Recovered/Resolved]
  - Dysgeusia [Recovered/Resolved]
  - Sleep disorder [Recovered/Resolved]

NARRATIVE: CASE EVENT DATE: 20230428
